FAERS Safety Report 22080516 (Version 1)
Quarter: 2023Q1

REPORT INFORMATION
  Report Type: Spontaneous
  Country: US (occurrence: None)
  Receive Date: 20230309
  Receipt Date: 20230309
  Transmission Date: 20230418
  Serious: Yes (unspecified)
  Sender: FDA-Public Use
  Company Number: None

PATIENT
  Age: 37 Year
  Sex: Female
  Weight: 78.75 kg

DRUGS (1)
  1. HOMEOPATHICS [Suspect]
     Active Substance: HOMEOPATHICS
     Indication: Eye irritation
     Dosage: FREQUENCY : AS NEEDED;?
     Route: 047
     Dates: start: 20230307, end: 20230307

REACTIONS (3)
  - Vision blurred [None]
  - Eye swelling [None]
  - Product formulation issue [None]

NARRATIVE: CASE EVENT DATE: 20230307
